FAERS Safety Report 4906063-9 (Version None)
Quarter: 2006Q1

REPORT INFORMATION
  Report Type: 
  Country: None (occurrence: None)
  Receive Date: 20060207
  Receipt Date: 20060119
  Transmission Date: 20060701
  Serious: Yes (Hospitalization, Disabling)
  Sender: FDA-Public Use
  Company Number: DSA_27678_2006

PATIENT
  Age: 72 Year
  Sex: Male

DRUGS (5)
  1. CO-RENITEN [Suspect]
     Indication: HYPERTENSION
     Dosage: DF UNK PO
     Route: 048
  2. OXYGEN [Concomitant]
  3. ADRENALINE [Concomitant]
  4. STEROIDS [Concomitant]
  5. C1-INH [Concomitant]

REACTIONS (17)
  - ANGIONEUROTIC OEDEMA [None]
  - APNOEA [None]
  - BLOOD CREATINE PHOSPHOKINASE INCREASED [None]
  - BLOOD CREATININE INCREASED [None]
  - BLOOD PRESSURE SYSTOLIC INCREASED [None]
  - C-REACTIVE PROTEIN INCREASED [None]
  - CARDIAC ARREST [None]
  - CARDIOVASCULAR DISORDER [None]
  - GENERAL PHYSICAL HEALTH DETERIORATION [None]
  - HYPERKALAEMIA [None]
  - MYOCLONUS [None]
  - OBESITY [None]
  - OXYGEN SATURATION DECREASED [None]
  - QUADRIPLEGIA [None]
  - SINUS TACHYCARDIA [None]
  - SWOLLEN TONGUE [None]
  - WHITE BLOOD CELL COUNT INCREASED [None]
